FAERS Safety Report 9894569 (Version 2)
Quarter: 2014Q2

REPORT INFORMATION
  Report Type: Spontaneous
  Country: US (occurrence: US)
  Receive Date: 20140213
  Receipt Date: 20140402
  Transmission Date: 20141212
  Serious: Yes (Congenital Anomaly, Other)
  Sender: FDA-Public Use
  Company Number: US-PFIZER INC-2014039962

PATIENT
  Sex: Female

DRUGS (11)
  1. ZOLOFT [Suspect]
     Dosage: UNK
     Route: 064
     Dates: start: 201006, end: 201106
  2. SERTRALINE HCL [Suspect]
     Dosage: UNK
     Route: 064
     Dates: start: 201006, end: 201106
  3. DESOXIMETASONE [Concomitant]
     Dosage: UNK
     Route: 064
  4. ORTHO EVRA [Concomitant]
     Dosage: UNK
     Route: 064
  5. PAROXETINE CR [Concomitant]
     Dosage: UNK
     Route: 064
  6. VERAMYST [Concomitant]
     Dosage: UNK
     Route: 064
  7. ADVAIR [Concomitant]
     Dosage: UNK
     Route: 064
  8. VENTOLIN HFA [Concomitant]
     Dosage: UNK
     Route: 064
  9. FLUTICASONE PROPIONATE [Concomitant]
     Dosage: UNK
     Route: 064
  10. PRENATAL VITAMINS [Concomitant]
     Dosage: UNK
     Route: 064
  11. ZYRTEC [Concomitant]
     Dosage: UNK
     Route: 064

REACTIONS (6)
  - Maternal exposure during pregnancy [Unknown]
  - Patent ductus arteriosus [Unknown]
  - Ventricular septal defect [Unknown]
  - Heart disease congenital [Unknown]
  - Atrial septal defect [Unknown]
  - Tricuspid valve incompetence [Unknown]
